FAERS Safety Report 20463273 (Version 1)
Quarter: 2022Q1

REPORT INFORMATION
  Report Type: Spontaneous
  Country: US (occurrence: US)
  Receive Date: 20220211
  Receipt Date: 20220211
  Transmission Date: 20220423
  Serious: No
  Sender: FDA-Public Use
  Company Number: US-ARBOR PHARMACEUTICALS, LLC-US-2021ARB000259

PATIENT
  Sex: Male

DRUGS (1)
  1. EDARBYCLOR [Suspect]
     Active Substance: AZILSARTAN KAMEDOXOMIL\CHLORTHALIDONE
     Indication: Product used for unknown indication
     Dosage: 40-12.5 MG

REACTIONS (4)
  - Blood pressure orthostatic increased [Unknown]
  - Blood pressure orthostatic decreased [Unknown]
  - Somnolence [Unknown]
  - Dizziness [Unknown]
